FAERS Safety Report 18224254 (Version 1)
Quarter: 2020Q3

REPORT INFORMATION
  Report Type: Spontaneous
  Country: US (occurrence: US)
  Receive Date: 20200902
  Receipt Date: 20200902
  Transmission Date: 20201103
  Serious: Yes (Other)
  Sender: FDA-Public Use
  Company Number: US-009507513-2008USA014747

PATIENT

DRUGS (1)
  1. INVANZ [Suspect]
     Active Substance: ERTAPENEM SODIUM
     Dosage: 100MG/ ONCE DAILY; EVERY 24 HOURS

REACTIONS (3)
  - Hallucination [Unknown]
  - Asthenia [Unknown]
  - Fatigue [Unknown]
